FAERS Safety Report 9202573 (Version 2)
Quarter: 2013Q3

REPORT INFORMATION
  Report Type: Report from Study
  Country: US (occurrence: US)
  Receive Date: 20130401
  Receipt Date: 20130820
  Transmission Date: 20140515
  Serious: Yes (Hospitalization)
  Sender: FDA-Public Use
  Company Number: US-US-EMD SERONO, INC.-7201891

PATIENT
  Age: 63 Year
  Sex: Female

DRUGS (2)
  1. REBIF [Suspect]
     Indication: PRODUCT USED FOR UNKNOWN INDICATION
     Route: 058
     Dates: start: 20051024
  2. REBIF [Suspect]
     Route: 058

REACTIONS (6)
  - Panic attack [Unknown]
  - Stress [Unknown]
  - Lip infection [Unknown]
  - Oropharyngeal pain [Unknown]
  - Influenza [Unknown]
  - Malaise [Recovering/Resolving]
